FAERS Safety Report 7504297-0 (Version None)
Quarter: 2011Q2

REPORT INFORMATION
  Report Type: 
  Country: None (occurrence: None)
  Receive Date: 20110525
  Receipt Date: 20110520
  Transmission Date: 20111010
  Serious: Yes (Death)
  Sender: FDA-Public Use
  Company Number: JP-BAYER-2011-035034

PATIENT
  Sex: Female

DRUGS (7)
  1. DEPAS [Concomitant]
     Route: 048
  2. MAGMITT [Concomitant]
     Route: 048
  3. OXYCONTIN [Concomitant]
     Route: 048
  4. NEXAVAR [Suspect]
     Indication: RENAL CELL CARCINOMA
     Dosage: DAILY DOSE 800 MG
     Route: 048
     Dates: start: 20110322, end: 20110404
  5. LOXONIN [Concomitant]
     Route: 048
  6. OXINORM [Concomitant]
     Route: 048
  7. ZOLPIDEM [Concomitant]
     Route: 048

REACTIONS (1)
  - DISSEMINATED INTRAVASCULAR COAGULATION [None]
